FAERS Safety Report 4752934-6 (Version None)
Quarter: 2005Q3

REPORT INFORMATION
  Report Type: 
  Country: None (occurrence: None)
  Receive Date: 20050823
  Receipt Date: 20050622
  Transmission Date: 20060218
  Serious: Yes (Other)
  Sender: FDA-Public Use
  Company Number: 19126

PATIENT
  Age: 60 Year
  Sex: Female
  Weight: 58.0604 kg

DRUGS (4)
  1. ETOPOSIDE [Suspect]
     Dates: start: 20050621
  2. CISPLATIN [Concomitant]
  3. BENADRYL [Concomitant]
  4. HYDROCORTISONE [Concomitant]

REACTIONS (2)
  - FLUSHING [None]
  - HYPOXIA [None]
